FAERS Safety Report 4740799-8 (Version None)
Quarter: 2005Q3

REPORT INFORMATION
  Report Type: 
  Country: None (occurrence: None)
  Receive Date: 20050810
  Receipt Date: 20050729
  Transmission Date: 20060218
  Serious: Yes (Hospitalization)
  Sender: FDA-Public Use
  Company Number: JP-SANOFI-SYNTHELABO-A01200505348

PATIENT
  Age: 42 Year
  Sex: Female

DRUGS (2)
  1. BONZOL [Suspect]
     Indication: APLASTIC ANAEMIA
     Dosage: 200 MG
     Route: 048
     Dates: start: 20030501, end: 20050630
  2. LEUPLIN [Concomitant]
     Indication: DRUG USE FOR UNKNOWN INDICATION
     Dosage: UNK
     Route: 065

REACTIONS (4)
  - DRUG INEFFECTIVE [None]
  - PAIN [None]
  - PLATELET COUNT DECREASED [None]
  - SPLENOMEGALY [None]
